FAERS Safety Report 7516933-3 (Version None)
Quarter: 2011Q2

REPORT INFORMATION
  Report Type: 
  Country: None (occurrence: None)
  Receive Date: 20110502
  Receipt Date: 20100412
  Transmission Date: 20111010
  Serious: Yes (Other)
  Sender: FDA-Public Use
  Company Number: 230842USA

PATIENT
  Sex: Female

DRUGS (4)
  1. ESTROGENS CONJUGATED [Suspect]
  2. CENESTIN [Suspect]
  3. MEDROXYPROGESTERONE [Suspect]
  4. ESTRADIOL [Suspect]

REACTIONS (1)
  - BREAST CANCER [None]
